FAERS Safety Report 21972039 (Version 9)
Quarter: 2023Q1

REPORT INFORMATION
  Report Type: Spontaneous
  Country: DK (occurrence: DK)
  Receive Date: 20230209
  Receipt Date: 20230330
  Transmission Date: 20230418
  Serious: Yes (Death, Life-Threatening, Hospitalization, Other)
  Sender: FDA-Public Use
  Company Number: None

PATIENT
  Age: 62 Year
  Sex: Male

DRUGS (29)
  1. LEVETIRACETAM [Suspect]
     Active Substance: LEVETIRACETAM
     Indication: Epilepsy
     Dosage: UNK
     Dates: start: 2021
  2. LEVETIRACETAM [Suspect]
     Active Substance: LEVETIRACETAM
     Indication: Product used for unknown indication
  3. INFLIXIMAB [Suspect]
     Active Substance: INFLIXIMAB
     Indication: Product used for unknown indication
     Dosage: UNK
  4. PREDNISOLONE [Suspect]
     Active Substance: PREDNISOLONE
     Indication: Product used for unknown indication
     Dosage: UNK
  5. PEMBROLIZUMAB [Suspect]
     Active Substance: PEMBROLIZUMAB
     Indication: Metastatic malignant melanoma
     Dosage: UNK
  6. PEMBROLIZUMAB [Suspect]
     Active Substance: PEMBROLIZUMAB
     Indication: Product used for unknown indication
  7. NIVOLUMAB [Suspect]
     Active Substance: NIVOLUMAB
     Indication: Metastatic malignant melanoma
     Dosage: UNK
  8. CIPROFLOXACIN [Suspect]
     Active Substance: CIPROFLOXACIN
     Indication: Escherichia urinary tract infection
     Dosage: UNK
  9. TOFACITINIB [Suspect]
     Active Substance: TOFACITINIB
     Indication: Product used for unknown indication
     Dosage: UNK
  10. METHYLPREDNISOLONE [Suspect]
     Active Substance: METHYLPREDNISOLONE
     Indication: Product used for unknown indication
     Dosage: UNK
  11. VEDOLIZUMAB [Suspect]
     Active Substance: VEDOLIZUMAB
     Indication: Product used for unknown indication
     Dosage: UNK
  12. VEDOLIZUMAB [Suspect]
     Active Substance: VEDOLIZUMAB
     Indication: Enterocolitis
     Dosage: 300 MILLIGRAM
  13. IPILIMUMAB [Suspect]
     Active Substance: IPILIMUMAB
     Indication: Product used for unknown indication
     Dosage: UNK
  14. MAGNESIUM [Suspect]
     Active Substance: MAGNESIUM
     Indication: Fluid replacement
     Dosage: UNK, ONCE DAILY (QD)
  15. SODIUM PHOSPHATE [Suspect]
     Active Substance: SODIUM PHOSPHATE
     Indication: Fluid replacement
     Dosage: UNK, ONCE DAILY (QD)
  16. LOPERAMIDE [Suspect]
     Active Substance: LOPERAMIDE
     Indication: Product used for unknown indication
     Dosage: 24 MILLIGRAM/KILOGRAM, ONCE DAILY (QD)
  17. LOPERAMIDE [Suspect]
     Active Substance: LOPERAMIDE
     Dosage: 80 MILLIGRAM, ONCE DAILY (QD)
  18. OCTREOTIDE [Suspect]
     Active Substance: OCTREOTIDE
     Indication: Product used for unknown indication
     Dosage: 100 MILLIGRAM/KILOGRAM, ONCE DAILY (QD)
  19. PANTOPRAZOLE [Suspect]
     Active Substance: PANTOPRAZOLE
     Indication: Product used for unknown indication
     Dosage: 80 MILLIGRAM/KILOGRAM, ONCE DAILY (QD)
  20. OPIUM [Suspect]
     Active Substance: OPIUM
     Indication: Product used for unknown indication
     Dosage: 5 MILLIGRAM UPTO 12 TIMES A DAY
  21. OPIUM [Suspect]
     Active Substance: OPIUM
     Dosage: 80 MILLIGRAM, 1X/DAY
  22. CHOLESTYRAMINE [Suspect]
     Active Substance: CHOLESTYRAMINE
     Indication: Product used for unknown indication
     Dosage: 12 MILLIGRAM, ONCE DAILY (QD)
  23. CHOLESTYRAMINE [Suspect]
     Active Substance: CHOLESTYRAMINE
     Dosage: 80 MILLIGRAM, ONCE DAILY (QD)
  24. CEFUROXIME [Suspect]
     Active Substance: CEFUROXIME
     Indication: Escherichia urinary tract infection
     Dosage: 1.5 GRAM, 3X/DAY (TID)
  25. CEFUROXIME [Suspect]
     Active Substance: CEFUROXIME
     Indication: Product used for unknown indication
  26. TRIMETHOPRIM [Suspect]
     Active Substance: TRIMETHOPRIM
     Indication: Escherichia urinary tract infection
     Dosage: 200 MILLIGRAM X 2/DAY
  27. DIETARY SUPPLEMENT [Suspect]
     Active Substance: DIETARY SUPPLEMENT
     Indication: Product used for unknown indication
     Dosage: UNK
  28. CORTISONE [Suspect]
     Active Substance: CORTISONE
     Indication: Product used for unknown indication
     Dosage: UNK
  29. CHOLESTYRAMINE [Suspect]
     Active Substance: CHOLESTYRAMINE
     Indication: Product used for unknown indication
     Dosage: 80 MILLIGRAM, ONCE DAILY (QD)

REACTIONS (28)
  - Neoplasm progression [Fatal]
  - Pulmonary embolism [Recovered/Resolved]
  - Pneumonia [Recovered/Resolved]
  - Diarrhoea [Recovered/Resolved]
  - Hospitalisation [Recovered/Resolved]
  - Epilepsy [Recovered/Resolved]
  - Intestinal obstruction [Recovered/Resolved]
  - Colitis microscopic [Unknown]
  - Erosive duodenitis [Unknown]
  - Acute kidney injury [Recovered/Resolved]
  - Escherichia urinary tract infection [Recovered/Resolved]
  - Intestinal intraepithelial lymphocytes increased [Unknown]
  - Enteritis [Unknown]
  - C-reactive protein increased [Unknown]
  - Inflammation [Unknown]
  - Duodenitis [Recovered/Resolved]
  - Apoptosis [Unknown]
  - Faecal calprotectin increased [Recovered/Resolved]
  - Oedema [Recovered/Resolved]
  - Probiotic therapy [Recovered/Resolved]
  - Cryptitis [Unknown]
  - Apoptosis [Unknown]
  - Lymphocyte count increased [Unknown]
  - Biopsy [Unknown]
  - Microvillous inclusion disease [Unknown]
  - Off label use [Unknown]
  - Drug ineffective [Unknown]
  - Therapy cessation [Unknown]
